FAERS Safety Report 6399779-1 (Version None)
Quarter: 2009Q4

REPORT INFORMATION
  Report Type: 
  Country: None (occurrence: None)
  Receive Date: 20091014
  Receipt Date: 20091002
  Transmission Date: 20100525
  Serious: Yes (Hospitalization)
  Sender: FDA-Public Use
  Company Number: US-ELI_LILLY_AND_COMPANY-US200910001503

PATIENT
  Age: 55 Year
  Sex: Male

DRUGS (1)
  1. CYMBALTA [Suspect]
     Dosage: 30 MG, UNK

REACTIONS (3)
  - ABDOMINAL DISCOMFORT [None]
  - DIARRHOEA [None]
  - HOSPITALISATION [None]
